FAERS Safety Report 15292883 (Version 1)
Quarter: 2018Q3

REPORT INFORMATION
  Report Type: Spontaneous
  Country: US (occurrence: US)
  Receive Date: 20180806
  Receipt Date: 20180806
  Transmission Date: 20181010
  Serious: Yes (Other)
  Sender: FDA-Public Use
  Company Number: None

PATIENT
  Age: 57 Year
  Sex: Female
  Weight: 83.91 kg

DRUGS (10)
  1. MICROCRYSTALLINE CELLULOSE [Suspect]
     Active Substance: CELLULOSE, MICROCRYSTALLINE
  2. TOPROL XL [Suspect]
     Active Substance: METOPROLOL SUCCINATE
     Indication: BLOOD PRESSURE MEASUREMENT
  3. ALLEGRA [Suspect]
     Active Substance: FEXOFENADINE HYDROCHLORIDE
  4. BENADRYL [Suspect]
     Active Substance: DIPHENHYDRAMINE HYDROCHLORIDE
  5. FLUTICASONE PROP [Suspect]
     Active Substance: FLUTICASONE PROPIONATE
     Route: 045
  6. TOPROL XL [Suspect]
     Active Substance: METOPROLOL SUCCINATE
     Indication: HYPERSENSITIVITY
  7. CEPHALEXIN. [Suspect]
     Active Substance: CEPHALEXIN
  8. LOSARTAN POTASSIUM. [Suspect]
     Active Substance: LOSARTAN POTASSIUM
  9. AMLODIPINE BESILATE [Suspect]
     Active Substance: AMLODIPINE BESYLATE
  10. MUCINEX DM [Suspect]
     Active Substance: DEXTROMETHORPHAN HYDROBROMIDE\GUAIFENESIN

REACTIONS (7)
  - Dermatitis [None]
  - Blister [None]
  - Rash pruritic [None]
  - Cellulitis [None]
  - Drug eruption [None]
  - Rash [None]
  - Rash generalised [None]
